FAERS Safety Report 8809730 (Version 2)
Quarter: 2012Q4

REPORT INFORMATION
  Report Type: 
  Country: GB (occurrence: GB)
  Receive Date: 20120926
  Receipt Date: 20121011
  Transmission Date: 20130627
  Serious: Yes (Other)
  Sender: FDA-Public Use
  Company Number: GB-ALLERGAN-1213095US

PATIENT
  Age: 45 Year
  Sex: Male

DRUGS (1)
  1. GANFORT [Suspect]
     Indication: GLAUCOMA
     Dosage: 1 Gtt OU, qd
     Route: 047

REACTIONS (2)
  - Pulmonary embolism [Recovering/Resolving]
  - Symptom masked [Recovering/Resolving]
